FAERS Safety Report 5317860-2 (Version None)
Quarter: 2007Q2

REPORT INFORMATION
  Report Type: 
  Country: None (occurrence: None)
  Receive Date: 20070430
  Receipt Date: 20070426
  Transmission Date: 20071010
  Serious: Yes (Death, Other)
  Sender: FDA-Public Use
  Company Number: 2006SP004544

PATIENT
  Age: 63 Year
  Sex: Male
  Weight: 54 kg

DRUGS (17)
  1. TEMODAL [Suspect]
     Indication: GLIOBLASTOMA MULTIFORME
     Dosage: SEE IMAGE
     Route: 048
     Dates: start: 20060712, end: 20060716
  2. TEMODAL [Suspect]
     Indication: GLIOBLASTOMA MULTIFORME
     Dosage: SEE IMAGE
     Route: 048
     Dates: start: 20060822, end: 20060826
  3. TEMODAL [Suspect]
     Indication: GLIOBLASTOMA MULTIFORME
     Dosage: SEE IMAGE
     Route: 048
     Dates: start: 20060925, end: 20060929
  4. FERON (PREV.) [Concomitant]
  5. CYMERIN (PREV.) [Concomitant]
  6. TEGRETOL (CON.) [Concomitant]
  7. EXCEGRAN (CON.) [Concomitant]
  8. PENTCILLIN (CON.) [Concomitant]
  9. SULPERAZON (CON.) [Concomitant]
  10. GLYCEOL (CON.) [Concomitant]
  11. SOL MEDROL (CON.) [Concomitant]
  12. UNASYN S (CON.) [Concomitant]
  13. PRODIF (CON.) [Concomitant]
  14. ALBUMIN (CON.) [Concomitant]
  15. GLOVENIN-I (CON.) [Concomitant]
  16. MEROPEN (CON.) [Concomitant]
  17. TAKEPRON OD (CON.) [Concomitant]

REACTIONS (9)
  - DISEASE PROGRESSION [None]
  - GENERAL PHYSICAL HEALTH DETERIORATION [None]
  - LUNG DISORDER [None]
  - MENINGIOMA MALIGNANT [None]
  - PLATELET COUNT DECREASED [None]
  - PNEUMONIA [None]
  - RESPIRATORY FAILURE [None]
  - SHOCK [None]
  - WHITE BLOOD CELL COUNT DECREASED [None]
